FAERS Safety Report 9895671 (Version 1)
Quarter: 2014Q1

REPORT INFORMATION
  Report Type: Spontaneous
  Country: US (occurrence: US)
  Receive Date: 20140213
  Receipt Date: 20140213
  Transmission Date: 20141002
  Serious: No
  Sender: FDA-Public Use
  Company Number: US-BRISTOL-MYERS SQUIBB COMPANY-18744656

PATIENT
  Age: 18 Year
  Sex: Female
  Weight: 53.51 kg

DRUGS (1)
  1. ORENCIA [Suspect]
     Indication: JUVENILE IDIOPATHIC ARTHRITIS
     Dosage: NO OF DOSES-3?LAST INF-02APR2013
     Route: 042
     Dates: start: 20130305

REACTIONS (4)
  - Headache [Unknown]
  - Nausea [Unknown]
  - Somnolence [Unknown]
  - Fatigue [Unknown]
